FAERS Safety Report 23986902 (Version 1)
Quarter: 2024Q2

REPORT INFORMATION
  Report Type: Spontaneous
  Country: US (occurrence: US)
  Receive Date: 20240618
  Receipt Date: 20240618
  Transmission Date: 20240716
  Serious: Yes (Other)
  Sender: FDA-Public Use
  Company Number: US-AMERICAN REGENT INC-2024002225

PATIENT
  Age: 53 Year

DRUGS (1)
  1. ESTRADIOL VALERATE [Suspect]
     Active Substance: ESTRADIOL VALERATE
     Indication: Transgender hormonal therapy
     Dosage: UNK, EVERY 14 DAYS FOR 13 YEARS

REACTIONS (3)
  - Invasive ductal breast carcinoma [Unknown]
  - Product use in unapproved indication [Unknown]
  - Product use issue [Unknown]
